FAERS Safety Report 5387957-X (Version None)
Quarter: 2007Q3

REPORT INFORMATION
  Report Type: 
  Country: None (occurrence: None)
  Receive Date: 20070716
  Receipt Date: 20060929
  Transmission Date: 20080115
  Serious: No
  Sender: FDA-Public Use
  Company Number: A0621774A

PATIENT
  Age: 44 Year
  Sex: Female

DRUGS (1)
  1. NICORETTE [Suspect]
     Dates: start: 20060927, end: 20060927

REACTIONS (4)
  - DYSPEPSIA [None]
  - NAUSEA [None]
  - NECK PAIN [None]
  - PAIN IN JAW [None]
